FAERS Safety Report 8767816 (Version 1)
Quarter: 2012Q4

REPORT INFORMATION
  Report Type: 
  Country: DE (occurrence: DE)
  Receive Date: 20120905
  Receipt Date: 20120905
  Transmission Date: 20130627
  Serious: Yes (Other)
  Sender: FDA-Public Use
  Company Number: PHHY2012DE074909

PATIENT
  Age: 48 Year
  Sex: Female

DRUGS (3)
  1. LORAZEPAM [Suspect]
  2. OLANZAPINE [Suspect]
     Dosage: 10 mg, QD
  3. HALOPERIDOL [Suspect]

REACTIONS (2)
  - Hypothermia [Recovered/Resolved]
  - Parkinsonism [Recovered/Resolved]
